FAERS Safety Report 7726185-7 (Version None)
Quarter: 2011Q3

REPORT INFORMATION
  Report Type: 
  Country: None (occurrence: None)
  Receive Date: 20110902
  Receipt Date: 20110824
  Transmission Date: 20111222
  Serious: Yes (Death, Hospitalization)
  Sender: FDA-Public Use
  Company Number: US-ACTELION-A-US2011-46729

PATIENT

DRUGS (4)
  1. CALCIUM CHANNEL BLOCKERS [Concomitant]
  2. TRACLEER [Suspect]
     Indication: PULMONARY ARTERIAL HYPERTENSION
     Dosage: UNK
     Route: 048
     Dates: start: 20100428, end: 20110730
  3. PLAVIX [Concomitant]
  4. REVATIO [Concomitant]
     Dosage: UNK

REACTIONS (5)
  - ADENOCARCINOMA [None]
  - FLUID RETENTION [None]
  - RECTAL HAEMORRHAGE [None]
  - DYSPNOEA [None]
  - MALIGNANT PLEURAL EFFUSION [None]
